FAERS Safety Report 13332926 (Version 2)
Quarter: 2018Q1

REPORT INFORMATION
  Report Type: Spontaneous
  Country: US (occurrence: US)
  Receive Date: 20170314
  Receipt Date: 20180309
  Transmission Date: 20180508
  Serious: No
  Sender: FDA-Public Use
  Company Number: US-PFIZER INC-2017106741

PATIENT
  Age: 4 Year
  Sex: Male
  Weight: 19.5 kg

DRUGS (4)
  1. QUILLIVANT XR [Suspect]
     Active Substance: METHYLPHENIDATE HYDROCHLORIDE
     Dosage: 2 ML ONCE IN THE MORNING ON WEEK DAYS ONLY
     Route: 048
     Dates: end: 20180301
  2. QUILLIVANT XR [Suspect]
     Active Substance: METHYLPHENIDATE HYDROCHLORIDE
     Indication: ATTENTION DEFICIT/HYPERACTIVITY DISORDER
     Dosage: 1 MG, UNK
     Dates: start: 201702, end: 2017
  3. QUILLIVANT XR [Suspect]
     Active Substance: METHYLPHENIDATE HYDROCHLORIDE
     Dosage: 1 MG, UNK
     Dates: start: 2017
  4. QUILLIVANT XR [Suspect]
     Active Substance: METHYLPHENIDATE HYDROCHLORIDE
     Dosage: 2 MG, UNK
     Dates: start: 2017, end: 2017

REACTIONS (6)
  - Anger [Unknown]
  - Crying [Unknown]
  - Aggression [Unknown]
  - Drug administered to patient of inappropriate age [Not Recovered/Not Resolved]
  - Abnormal behaviour [Unknown]
  - Emotional disorder [Unknown]

NARRATIVE: CASE EVENT DATE: 2017
